FAERS Safety Report 7307484-X (Version None)
Quarter: 2011Q1

REPORT INFORMATION
  Report Type: 
  Country: None (occurrence: None)
  Receive Date: 20110209
  Receipt Date: 20110128
  Transmission Date: 20110831
  Serious: Yes (Hospitalization)
  Sender: FDA-Public Use
  Company Number: 025462

PATIENT
  Sex: Female
  Weight: 65 kg

DRUGS (5)
  1. PREDNISONE TAB [Concomitant]
  2. APRANAX /00256202/ [Concomitant]
  3. METOJECT /00113801/ [Concomitant]
  4. CERTOLIZUMAB PEGOL (CERTOLIZUMAB PEGOL) [Suspect]
     Indication: RHEUMATOID ARTHRITIS
     Dosage: (400 MG 1X/2 WEEKS, WEEKS 0, 2, AND 4: SUBCUTANEOUS) (200 MG 1X/2 WEEKS, WEEKS 6 TO 16: SUBCUTANEOUS
     Route: 058
     Dates: end: 20101101
  5. CERTOLIZUMAB PEGOL (CERTOLIZUMAB PEGOL) [Suspect]
     Indication: RHEUMATOID ARTHRITIS
     Dosage: (400 MG 1X/2 WEEKS, WEEKS 0, 2, AND 4: SUBCUTANEOUS) (200 MG 1X/2 WEEKS, WEEKS 6 TO 16: SUBCUTANEOUS
     Route: 058
     Dates: start: 20100408

REACTIONS (3)
  - DERMAL CYST [None]
  - VULVA CYST [None]
  - INFLAMMATION [None]
